FAERS Safety Report 4442918-X (Version None)
Quarter: 2004Q3

REPORT INFORMATION
  Report Type: 
  Country: None (occurrence: None)
  Receive Date: 20040907
  Receipt Date: 20040907
  Transmission Date: 20050211
  Serious: Yes (Life-Threatening)
  Sender: FDA-Public Use
  Company Number: None

PATIENT
  Age: 43 Year
  Sex: Male
  Weight: 128 kg

DRUGS (3)
  1. METFORMIN HCL [Suspect]
     Indication: DIABETES MELLITUS NON-INSULIN-DEPENDENT
     Dosage: 2 GM PO QD
     Route: 048
  2. PROCARDIA [Concomitant]
  3. GLYBURIDE [Concomitant]

REACTIONS (9)
  - ALCOHOL USE [None]
  - BLOOD LACTIC ACID ABNORMAL [None]
  - CARDIO-RESPIRATORY ARREST [None]
  - DYSPNOEA [None]
  - HYPERHIDROSIS [None]
  - METABOLIC DISORDER [None]
  - PANCREATITIS ACUTE [None]
  - RENAL FAILURE ACUTE [None]
  - RESPIRATORY FAILURE [None]
